FAERS Safety Report 17439485 (Version 1)
Quarter: 2020Q1

REPORT INFORMATION
  Report Type: Spontaneous
  Country: US (occurrence: US)
  Receive Date: 20200205
  Receipt Date: 20200205
  Transmission Date: 20200409
  Serious: Yes (Hospitalization)
  Sender: FDA-Public Use
  Company Number: None

PATIENT
  Age: 30 Year
  Sex: Female

DRUGS (1)
  1. MESALAMINE DR 1.2 GM ZYDUS PHARMACEUTICALS (USA) [Suspect]
     Active Substance: MESALAMINE
     Indication: COLITIS ULCERATIVE
     Dosage: 1.2GM 4 TABLETS ONCE DAILY ORAL
     Route: 048
     Dates: start: 20190925

REACTIONS (1)
  - Umbilical hernia repair [None]

NARRATIVE: CASE EVENT DATE: 20200131
